FAERS Safety Report 5592425-6 (Version None)
Quarter: 2007Q4

REPORT INFORMATION
  Report Type: 
  Country: None (occurrence: None)
  Receive Date: 20071217
  Receipt Date: 20070920
  Transmission Date: 20080405
  Serious: No
  Sender: FDA-Public Use
  Company Number: BDI-010209

PATIENT
  Age: 48 Year
  Sex: Female
  Weight: 70 kg

DRUGS (2)
  1. MULTIHANCE [Suspect]
     Indication: BACK PAIN
     Dosage: 15 ML ONCE IV
     Route: 042
     Dates: start: 20070905, end: 20070905
  2. MULTIHANCE [Suspect]
     Indication: NUCLEAR MAGNETIC RESONANCE IMAGING
     Dosage: 15 ML ONCE IV
     Route: 042
     Dates: start: 20070905, end: 20070905

REACTIONS (2)
  - DYSPNOEA [None]
  - SYNCOPE VASOVAGAL [None]
